FAERS Safety Report 9010060 (Version 1)
Quarter: 2013Q1

REPORT INFORMATION
  Report Type: Spontaneous
  Country: US (occurrence: US)
  Receive Date: 20130110
  Receipt Date: 20130110
  Transmission Date: 20140127
  Serious: Yes (Other)
  Sender: FDA-Public Use
  Company Number: PHEH2013US000588

PATIENT
  Sex: Female

DRUGS (11)
  1. TEKTURNA [Suspect]
     Dosage: UNK UKN, UNK
  2. ENDOCET [Suspect]
     Dosage: UNK UKN, UNK
  3. SPIRIVA [Concomitant]
     Dosage: UNK UKN, UNK
  4. MICARDIS [Concomitant]
     Dosage: UNK UKN, UNK
  5. METOPROLOL [Concomitant]
     Dosage: UNK UKN, UNK
  6. DILTIAZEM [Concomitant]
     Dosage: UNK UKN, UNK
  7. CLONIDINE HCL [Concomitant]
     Dosage: UNK UKN, UNK
  8. FUROSEMIDE [Concomitant]
     Dosage: UNK UKN, UNK
  9. SINGULAIR [Concomitant]
     Dosage: UNK UKN, UNK
  10. ZOLOFT [Concomitant]
     Dosage: UNK UKN, UNK
  11. ALPRAZOLAM [Concomitant]
     Dosage: UNK UKN, UNK

REACTIONS (3)
  - Supraventricular tachycardia [Unknown]
  - Dyspnoea [Unknown]
  - Malaise [Unknown]
